FAERS Safety Report 16123319 (Version 3)
Quarter: 2022Q4

REPORT INFORMATION
  Report Type: Spontaneous
  Country: US (occurrence: US)
  Receive Date: 20190327
  Receipt Date: 20221227
  Transmission Date: 20230112
  Serious: Yes (Hospitalization, Other)
  Sender: FDA-Public Use
  Company Number: US-MLMSERVICE-20190313-1657170-1

PATIENT
  Age: 52 Year
  Sex: Male
  Weight: 63 kg

DRUGS (6)
  1. TACROLIMUS [Suspect]
     Active Substance: TACROLIMUS
     Dosage: 2 MG, 2X/DAY (ANTIREJECTION)
  2. MIDAZOLAM [Concomitant]
     Active Substance: MIDAZOLAM
     Indication: Sedation
     Dosage: 2 MG, UNK
     Route: 042
  3. MEPIVACAINE [Concomitant]
     Active Substance: MEPIVACAINE HYDROCHLORIDE
     Indication: Anaesthesia
     Dosage: 20 ML, UNK
  4. GABAPENTIN [Concomitant]
     Active Substance: GABAPENTIN
     Indication: Neuropathy peripheral
     Dosage: UNK
  5. OXYCODONE [Concomitant]
     Active Substance: OXYCODONE
     Indication: Pain
     Dosage: 10 MG, 4X/DAY
  6. OXYCODONE [Concomitant]
     Active Substance: OXYCODONE
     Dosage: 30 MG, 2X/DAY (EXTENDED-RELEASE)

REACTIONS (5)
  - Arterial occlusive disease [Recovered/Resolved]
  - Motor dysfunction [Recovered/Resolved]
  - Artery dissection [Recovered/Resolved]
  - Sensory loss [Recovered/Resolved]
  - Pain in extremity [Recovered/Resolved]
